FAERS Safety Report 6255749-5 (Version None)
Quarter: 2009Q3

REPORT INFORMATION
  Report Type: 
  Country: None (occurrence: None)
  Receive Date: 20090701
  Receipt Date: 20090622
  Transmission Date: 20100115
  Serious: Yes (Other)
  Sender: FDA-Public Use
  Company Number: GXKR2009DE07036

PATIENT
  Sex: Male

DRUGS (2)
  1. LORANO (NGX) (LORATADINE) TABLET, 10MG [Suspect]
     Dosage: 10 MG, PRN, ORAL
     Route: 048
  2. MOCLOBEMID 1A PHARMA (NGX) (MOCLOBEMIDE) UNKNOWN, 150MG [Suspect]
     Dosage: 150 MG, QD, ORAL
     Route: 048

REACTIONS (2)
  - DRUG INTERACTION [None]
  - HYPERTENSIVE CRISIS [None]
